FAERS Safety Report 10538341 (Version 2)
Quarter: 2014Q4

REPORT INFORMATION
  Report Type: Report from Study
  Country: MX (occurrence: MX)
  Receive Date: 20141023
  Receipt Date: 20141028
  Transmission Date: 20150529
  Serious: Yes (Death)
  Sender: FDA-Public Use
  Company Number: PHHY2014MX138684

PATIENT
  Sex: Male

DRUGS (2)
  1. EXELON PATCH [Suspect]
     Active Substance: RIVASTIGMINE
     Indication: MEMORY IMPAIRMENT
     Dosage: 9.5 MG, QD
     Route: 062
     Dates: start: 201309
  2. MEMANTINE [Concomitant]
     Active Substance: MEMANTINE
     Indication: MEMORY IMPAIRMENT
     Dosage: 1 DF, QD
     Route: 065
     Dates: start: 201310

REACTIONS (3)
  - Hepatic cancer [Fatal]
  - Pruritus [Unknown]
  - Skin irritation [Unknown]
